FAERS Safety Report 17216299 (Version 1)
Quarter: 2019Q4

REPORT INFORMATION
  Report Type: Spontaneous
  Country: DK (occurrence: DK)
  Receive Date: 20191230
  Receipt Date: 20191230
  Transmission Date: 20200122
  Serious: Yes (Other)
  Sender: FDA-Public Use
  Company Number: DK-MYLANLABS-2019M1130802

PATIENT
  Age: 16 Year
  Sex: Female

DRUGS (1)
  1. LEDERSPAN [Suspect]
     Active Substance: TRIAMCINOLONE HEXACETONIDE
     Indication: PRODUCT USED FOR UNKNOWN INDICATION
     Dosage: STYRKE: 20 MG/ML.
     Dates: start: 201211, end: 201403

REACTIONS (8)
  - Pain in extremity [Not Recovered/Not Resolved]
  - Tendon injury [Recovered/Resolved with Sequelae]
  - Osteoarthritis [Recovered/Resolved]
  - Product residue present [Recovered/Resolved]
  - Soft tissue disorder [Recovered/Resolved]
  - Skin malformation [Unknown]
  - Musculoskeletal discomfort [Not Recovered/Not Resolved]
  - Injection site discolouration [Unknown]

NARRATIVE: CASE EVENT DATE: 2013
